FAERS Safety Report 6335306-2 (Version None)
Quarter: 2009Q3

REPORT INFORMATION
  Report Type: 
  Country: None (occurrence: None)
  Receive Date: 20090827
  Receipt Date: 20090818
  Transmission Date: 20100115
  Serious: Yes (Life-Threatening, Hospitalization)
  Sender: FDA-Public Use
  Company Number: POMP-1000662

PATIENT
  Age: 4 Month
  Sex: Female
  Weight: 6 kg

DRUGS (5)
  1. MYOZYME [Suspect]
     Indication: GLYCOGEN STORAGE DISEASE TYPE II
     Dosage: 20 MG/KG, Q2W, INTRAVENOUS, UNKNOWNI
     Route: 042
     Dates: start: 20090331, end: 20090709
  2. PROPRANOLOL [Concomitant]
  3. TINSET (OXATOMIDE) [Concomitant]
  4. CHLORPHENIRAMINE TAB [Concomitant]
  5. HYDROCORTISONE (SALICYLIC ACID) [Concomitant]

REACTIONS (10)
  - ANAPHYLACTIC SHOCK [None]
  - ANGIOEDEMA [None]
  - BRONCHOSPASM [None]
  - CYANOSIS [None]
  - DYSPNOEA [None]
  - LARYNGEAL OEDEMA [None]
  - PERIORBITAL OEDEMA [None]
  - RASH [None]
  - TACHYCARDIA [None]
  - URTICARIA [None]
